FAERS Safety Report 5313554-8 (Version None)
Quarter: 2007Q2

REPORT INFORMATION
  Report Type: 
  Country: None (occurrence: None)
  Receive Date: 20070501
  Receipt Date: 20070125
  Transmission Date: 20071010
  Serious: No
  Sender: FDA-Public Use
  Company Number: 2007UW01617

PATIENT
  Age: 52 Year
  Sex: Female
  Weight: 54.4 kg

DRUGS (2)
  1. ENTOCORT [Suspect]
     Indication: COLITIS MICROSCOPIC
     Route: 048
     Dates: start: 20061201
  2. PREMPRO [Concomitant]

REACTIONS (1)
  - ABDOMINAL DISTENSION [None]
